FAERS Safety Report 11380002 (Version 1)
Quarter: 2015Q3

REPORT INFORMATION
  Report Type: Spontaneous
  Country: US (occurrence: US)
  Receive Date: 20150814
  Receipt Date: 20150814
  Transmission Date: 20151125
  Serious: No
  Sender: FDA-Public Use
  Company Number: US-ASTRAZENECA-2015SE63685

PATIENT
  Age: 86 Year
  Sex: Female

DRUGS (11)
  1. BIOTIN [Concomitant]
     Active Substance: BIOTIN
     Dosage: 5000 1 DAY HAIR
  2. ROSE HIPS CO3 [Concomitant]
     Dosage: 500 1 DAY
  3. AMITIZA [Concomitant]
     Active Substance: LUBIPROSTONE
  4. BAYER [Concomitant]
     Active Substance: ASPIRIN
  5. TOVIAZ [Concomitant]
     Active Substance: FESOTERODINE FUMARATE
  6. CENTRUM SILVER [Concomitant]
     Active Substance: VITAMINS
     Dosage: 1 DAY
  7. LIPITOR [Concomitant]
     Active Substance: ATORVASTATIN CALCIUM
     Dosage: 1 DAY NIGHT
  8. OXYCODONE [Concomitant]
     Active Substance: OXYCODONE
  9. NEXIUM 24HR [Suspect]
     Active Substance: ESOMEPRAZOLE MAGNESIUM
     Route: 048
     Dates: end: 2015
  10. COQ10 [Concomitant]
     Active Substance: UBIDECARENONE
  11. AREDS PAESER BRUSH [Concomitant]
     Dosage: 1 DAY

REACTIONS (3)
  - Abdominal discomfort [Unknown]
  - Drug ineffective [Not Recovered/Not Resolved]
  - Product use issue [Recovered/Resolved]
